FAERS Safety Report 9461096 (Version 1)
Quarter: 2013Q3

REPORT INFORMATION
  Report Type: Spontaneous
  Country: CA (occurrence: CA)
  Receive Date: 20130816
  Receipt Date: 20130816
  Transmission Date: 20140515
  Serious: Yes (Life-Threatening, Hospitalization, Other)
  Sender: FDA-Public Use
  Company Number: CA-ROCHE-1262027

PATIENT
  Age: 23 Year
  Sex: Male

DRUGS (6)
  1. CELLCEPT [Suspect]
     Indication: PRODUCT USED FOR UNKNOWN INDICATION
     Route: 065
  2. EPREX [Suspect]
     Indication: PRODUCT USED FOR UNKNOWN INDICATION
     Dosage: THERAPY DURATION: 87.0 DAYS
     Route: 042
  3. EPREX [Suspect]
     Dosage: THERAPY DURATION: 93.0 DAYS
     Route: 042
  4. EPREX [Suspect]
     Dosage: THERAPY DURATION: 62.0 DAYS
     Route: 042
  5. CYCLOSPORINE [Concomitant]
     Route: 065
  6. PREDNISONE [Concomitant]
     Route: 065

REACTIONS (6)
  - Anti-erythropoietin antibody negative [Unknown]
  - Diarrhoea [Unknown]
  - Haemoglobin decreased [Unknown]
  - Hyperparathyroidism [Unknown]
  - Reticulocyte count decreased [Unknown]
  - Therapeutic response decreased [Unknown]
